FAERS Safety Report 4905298-9 (Version None)
Quarter: 2006Q1

REPORT INFORMATION
  Report Type: 
  Country: None (occurrence: None)
  Receive Date: 20060208
  Receipt Date: 20060131
  Transmission Date: 20060701
  Serious: Yes (Other)
  Sender: FDA-Public Use
  Company Number: PHBS2006JP01882

PATIENT
  Age: 28 Year
  Sex: Female

DRUGS (3)
  1. PARLODEL [Suspect]
     Indication: HYPERPROLACTINAEMIA
     Dates: end: 20060131
  2. PHENOBAL [Suspect]
  3. ALCOHOL [Concomitant]

REACTIONS (1)
  - DEPRESSED LEVEL OF CONSCIOUSNESS [None]
